FAERS Safety Report 11226114 (Version 1)
Quarter: 2015Q2

REPORT INFORMATION
  Report Type: Spontaneous
  Country: US (occurrence: US)
  Receive Date: 20150629
  Receipt Date: 20150629
  Transmission Date: 20150821
  Serious: Yes (Hospitalization)
  Sender: FDA-Public Use
  Company Number: US-ROXANE LABORATORIES, INC.-2015-RO-01060RO

PATIENT
  Age: 76 Year
  Sex: Female
  Weight: 91 kg

DRUGS (1)
  1. DEXAMETHASONE. [Suspect]
     Active Substance: DEXAMETHASONE
     Indication: PLASMA CELL MYELOMA
     Route: 048
     Dates: start: 20140731

REACTIONS (3)
  - Lumbar vertebral fracture [Unknown]
  - Fall [Recovered/Resolved]
  - Rib fracture [Unknown]

NARRATIVE: CASE EVENT DATE: 20150426
